FAERS Safety Report 24986941 (Version 4)
Quarter: 2025Q2

REPORT INFORMATION
  Report Type: Report from Study
  Country: US (occurrence: US)
  Receive Date: 20250219
  Receipt Date: 20250410
  Transmission Date: 20250717
  Serious: No
  Sender: ASTELLAS
  Company Number: US-ASTELLAS-2025-AER-009291

PATIENT

DRUGS (3)
  1. AVACINCAPTAD PEGOL [Suspect]
     Active Substance: AVACINCAPTAD PEGOL
     Indication: Dry age-related macular degeneration
     Route: 031
  2. AVACINCAPTAD PEGOL [Suspect]
     Active Substance: AVACINCAPTAD PEGOL
  3. AVACINCAPTAD PEGOL [Suspect]
     Active Substance: AVACINCAPTAD PEGOL

REACTIONS (4)
  - No adverse event [Unknown]
  - Device failure [Unknown]
  - Needle issue [Unknown]
  - Syringe issue [Unknown]
